FAERS Safety Report 4851780-2 (Version None)
Quarter: 2005Q4

REPORT INFORMATION
  Report Type: 
  Country: None (occurrence: None)
  Receive Date: 20051209
  Receipt Date: 20051128
  Transmission Date: 20060501
  Serious: Yes (Disabling)
  Sender: FDA-Public Use
  Company Number: 2005158444

PATIENT
  Age: 57 Year
  Sex: Male

DRUGS (6)
  1. LYRICA [Suspect]
     Indication: PAIN
     Dosage: 225 MG (75 MG, 3 IN 1 D), ORAL
     Route: 048
     Dates: start: 20050930
  2. VALIUM [Concomitant]
  3. ZYPREXA [Concomitant]
  4. CHLORPROMAZINE HCL [Concomitant]
  5. MOGADON (NITRAZEPAM) [Concomitant]
  6. FLUNIPAM (FLUNITRAZEPAM) [Concomitant]

REACTIONS (2)
  - CONDITION AGGRAVATED [None]
  - SLEEP DISORDER [None]
